FAERS Safety Report 23575610 (Version 1)
Quarter: 2024Q1

REPORT INFORMATION
  Report Type: Spontaneous
  Country: FR (occurrence: FR)
  Receive Date: 20240228
  Receipt Date: 20240228
  Transmission Date: 20240410
  Serious: Yes (Hospitalization)
  Sender: FDA-Public Use
  Company Number: None

PATIENT
  Age: 36 Year
  Sex: Male
  Weight: 64 kg

DRUGS (8)
  1. MIDAZOLAM HYDROCHLORIDE [Interacting]
     Active Substance: MIDAZOLAM HYDROCHLORIDE
     Indication: Sedative therapy
     Dosage: 10 MILLIGRAM, QH (10 MG 1 TIME PER HOUR)
     Route: 042
     Dates: start: 20230829, end: 20230830
  2. LACOSAMIDE [Interacting]
     Active Substance: LACOSAMIDE
     Indication: Epilepsy
     Dosage: 200 MILLIGRAM, BID (200MG 2 TIMES A DAY, 1 FP)
     Route: 048
     Dates: start: 20230828
  3. LEVETIRACETAM [Interacting]
     Active Substance: LEVETIRACETAM
     Indication: Epilepsy
     Dosage: 1750 MILLIGRAM, BID (1750 MG 2 TIMES A DAY, 1FP)
     Route: 042
     Dates: start: 20230825, end: 20230911
  4. VALPROATE SODIUM [Interacting]
     Active Substance: VALPROATE SODIUM
     Indication: Epilepsy
     Dosage: 4 GRAM, QD (4 G PER DAY, 1 FP)
     Route: 042
     Dates: start: 20230828
  5. FYCOMPA [Interacting]
     Active Substance: PERAMPANEL
     Indication: Epilepsy
     Dosage: 12 MILLIGRAM, QD (12 MG A DAY)
     Route: 048
     Dates: start: 20230827
  6. CANNABIDIOL [Interacting]
     Active Substance: CANNABIDIOL
     Indication: Epilepsy
     Dosage: 4 MILLIGRAM, Q4H (4 MG 6 TIMES A DAY, 1 FP)
     Route: 048
     Dates: start: 20230825, end: 20230916
  7. ZONEGRAN [Interacting]
     Active Substance: ZONISAMIDE
     Indication: Epilepsy
     Dosage: 200 MILLIGRAM, BID (200 MG 2 TIMES A DAY, 1 FP)
     Route: 048
     Dates: end: 20230827
  8. RIVOTRIL [Interacting]
     Active Substance: CLONAZEPAM
     Indication: Epilepsy
     Dosage: 2 MILLIGRAM, Q4H (2 MG 6 TIMES A DAY, 1 FP)
     Route: 048
     Dates: start: 20230828

REACTIONS (2)
  - Psychotic disorder [Not Recovered/Not Resolved]
  - Drug interaction [Unknown]

NARRATIVE: CASE EVENT DATE: 20230828
